FAERS Safety Report 8363838-4 (Version None)
Quarter: 2012Q2

REPORT INFORMATION
  Report Type: 
  Country: None (occurrence: None)
  Receive Date: 20120516
  Receipt Date: 20120104
  Transmission Date: 20120825
  Serious: No
  Sender: FDA-Public Use
  Company Number: US-ALEXION-A201200022

PATIENT
  Sex: Male

DRUGS (1)
  1. SOLIRIS [Suspect]
     Indication: PAROXYSMAL NOCTURNAL HAEMOGLOBINURIA
     Dosage: 1200 MG, UNK
     Route: 042

REACTIONS (9)
  - VISUAL ACUITY REDUCED [None]
  - NECK PAIN [None]
  - DIZZINESS [None]
  - CONDITION AGGRAVATED [None]
  - URINE ABNORMALITY [None]
  - CHROMATURIA [None]
  - INCORRECT DOSE ADMINISTERED [None]
  - MIGRAINE [None]
  - STRESS [None]
